FAERS Safety Report 4794945-0 (Version None)
Quarter: 2005Q4

REPORT INFORMATION
  Report Type: 
  Country: None (occurrence: None)
  Receive Date: 20051006
  Receipt Date: 20050925
  Transmission Date: 20060501
  Serious: Yes (Hospitalization)
  Sender: FDA-Public Use
  Company Number: 2005135467

PATIENT
  Sex: Female

DRUGS (3)
  1. LUSTRAL (SERTRALINE) [Suspect]
     Indication: BIPOLAR DISORDER
  2. OLANZAPINE [Concomitant]
  3. VALPROIC ACID [Concomitant]

REACTIONS (2)
  - FALL [None]
  - SPINAL FRACTURE [None]
